FAERS Safety Report 15641257 (Version 1)
Quarter: 2018Q4

REPORT INFORMATION
  Report Type: Spontaneous
  Country: ES (occurrence: ES)
  Receive Date: 20181120
  Receipt Date: 20181120
  Transmission Date: 20190205
  Serious: Yes (Other)
  Sender: FDA-Public Use
  Company Number: PHHY2018ES159515

PATIENT
  Age: 72 Year
  Sex: Female
  Weight: 66 kg

DRUGS (1)
  1. AMOXICILLIN+CLAVULANIC ACID [Suspect]
     Active Substance: AMOXICILLIN\CLAVULANIC ACID
     Indication: PROPHYLAXIS
     Dosage: 2 G, TOTAL
     Route: 042
     Dates: start: 20180608, end: 20180608

REACTIONS (2)
  - Rash [Recovered/Resolved]
  - Vomiting [Recovered/Resolved]

NARRATIVE: CASE EVENT DATE: 20180608
